FAERS Safety Report 8112502-5 (Version None)
Quarter: 2012Q1

REPORT INFORMATION
  Report Type: 
  Country: None (occurrence: None)
  Receive Date: 20120131
  Receipt Date: 20120124
  Transmission Date: 20120608
  Serious: Yes (Death)
  Sender: FDA-Public Use
  Company Number: 2010000235

PATIENT
  Age: 87 Year
  Sex: Female

DRUGS (4)
  1. TARCEVA [Suspect]
     Indication: BRONCHIAL CARCINOMA
     Dosage: 150 MG, UID/QD, ORAL    75 MG, 3X25MG UID/QD, ORAL
     Route: 048
     Dates: start: 20100105
  2. TARCEVA [Suspect]
     Indication: LUNG CARCINOMA CELL TYPE UNSPECIFIED STAGE 0
     Dosage: 150 MG, UID/QD, ORAL    75 MG, 3X25MG UID/QD, ORAL
     Route: 048
     Dates: start: 20100105
  3. TARCEVA [Suspect]
     Indication: BRONCHIAL CARCINOMA
     Dosage: 150 MG, UID/QD, ORAL    75 MG, 3X25MG UID/QD, ORAL
     Route: 048
     Dates: start: 20091231
  4. TARCEVA [Suspect]
     Indication: LUNG CARCINOMA CELL TYPE UNSPECIFIED STAGE 0
     Dosage: 150 MG, UID/QD, ORAL    75 MG, 3X25MG UID/QD, ORAL
     Route: 048
     Dates: start: 20091231

REACTIONS (3)
  - DRY SKIN [None]
  - INCORRECT DOSE ADMINISTERED [None]
  - DIARRHOEA [None]
